FAERS Safety Report 15082400 (Version 1)
Quarter: 2018Q2

REPORT INFORMATION
  Report Type: Spontaneous
  Country: ES (occurrence: ES)
  Receive Date: 20180628
  Receipt Date: 20180628
  Transmission Date: 20180711
  Serious: Yes (Hospitalization)
  Sender: FDA-Public Use
  Company Number: ES-009507513-1806ESP010946

PATIENT
  Age: 56 Year
  Sex: Male

DRUGS (8)
  1. CLEXANE (ENOXAPARIN SODIUM) [Concomitant]
     Active Substance: ENOXAPARIN SODIUM
     Dosage: 1 AMP
     Route: 058
     Dates: start: 20171010
  2. DAPTOMYCIN. [Suspect]
     Active Substance: DAPTOMYCIN
     Dosage: 850 MG/24H
     Route: 042
     Dates: start: 20171027, end: 20171103
  3. COLCHIMAX (COLCHICINE (+) DICYCLOMINE HYDROCHLORIDE) [Concomitant]
     Active Substance: COLCHICINE\DICYCLOMINE HYDROCHLORIDE
     Dosage: 1-1-1
     Route: 048
     Dates: start: 20171001
  4. ACETAMINOPHEN. [Concomitant]
     Active Substance: ACETAMINOPHEN
     Dosage: 1GR/8H
     Route: 042
     Dates: start: 20171001
  5. MEROPENEM. [Suspect]
     Active Substance: MEROPENEM
     Dosage: 1GR/8H
     Route: 042
     Dates: start: 20171027, end: 20171106
  6. PANTOPRAZOLE [Concomitant]
     Active Substance: PANTOPRAZOLE
     Dosage: 40 MG DAILY
     Route: 042
     Dates: start: 20171001
  7. ENALAPRIL [Concomitant]
     Active Substance: ENALAPRIL
     Dosage: 5 MG DAILY
     Route: 048
     Dates: start: 20171001
  8. SERTRALINE HYDROCHLORIDE. [Concomitant]
     Active Substance: SERTRALINE HYDROCHLORIDE
     Dosage: 25 MG, QD
     Route: 048
     Dates: start: 20171025

REACTIONS (2)
  - Gamma-glutamyltransferase increased [Recovered/Resolved]
  - Drug reaction with eosinophilia and systemic symptoms [Recovered/Resolved]

NARRATIVE: CASE EVENT DATE: 20171102
